FAERS Safety Report 8508912-4 (Version None)
Quarter: 2012Q3

REPORT INFORMATION
  Report Type: 
  Country: None (occurrence: None)
  Receive Date: 20120713
  Receipt Date: 20120705
  Transmission Date: 20120928
  Serious: Yes (Other)
  Sender: FDA-Public Use
  Company Number: BR-JNJFOC-20120701965

PATIENT
  Sex: Male
  Weight: 97 kg

DRUGS (8)
  1. RIVAROXABAN [Suspect]
     Indication: CEREBROVASCULAR ACCIDENT PROPHYLAXIS
     Route: 048
     Dates: start: 20120620, end: 20120627
  2. ENALAPRIL MALEATE [Concomitant]
     Indication: CARDIAC DISORDER
     Route: 048
  3. CARVEDILOL [Concomitant]
     Indication: CARDIAC DISORDER
     Route: 048
  4. ASPIRIN [Concomitant]
     Indication: ANTICOAGULANT THERAPY
     Route: 048
  5. SIMVASTATIN [Concomitant]
     Indication: PROPHYLAXIS
     Route: 048
  6. OMEPRAZOLE [Concomitant]
     Indication: PROPHYLAXIS
     Route: 048
  7. EZETIMIBE [Concomitant]
     Indication: PROPHYLAXIS
     Route: 048
  8. RIVAROXABAN [Suspect]
     Indication: ATRIAL FIBRILLATION
     Route: 048
     Dates: start: 20120620, end: 20120627

REACTIONS (3)
  - UROGENITAL HAEMORRHAGE [None]
  - NEPHROLITHIASIS [None]
  - RENAL COLIC [None]
